FAERS Safety Report 13268952 (Version 1)
Quarter: 2017Q1

REPORT INFORMATION
  Report Type: Spontaneous
  Country: TW (occurrence: TW)
  Receive Date: 20170224
  Receipt Date: 20170224
  Transmission Date: 20170428
  Serious: Yes (Other)
  Sender: FDA-Public Use
  Company Number: TW-LANNETT COMPANY, INC.-TW-2017LAN000583

PATIENT
  Age: 72 Year
  Sex: Male

DRUGS (1)
  1. ISONIAZID. [Suspect]
     Active Substance: ISONIAZID
     Indication: PRODUCT USED FOR UNKNOWN INDICATION
     Dosage: UNK

REACTIONS (7)
  - Lymphocyte morphology abnormal [Unknown]
  - Drug reaction with eosinophilia and systemic symptoms [Unknown]
  - Histology abnormal [Unknown]
  - White blood cell count decreased [Unknown]
  - Liver injury [Unknown]
  - Renal injury [Unknown]
  - Eosinophil count increased [Unknown]
